FAERS Safety Report 6589630-9 (Version None)
Quarter: 2010Q1

REPORT INFORMATION
  Report Type: 
  Country: None (occurrence: None)
  Receive Date: 20100212
  Receipt Date: 20100128
  Transmission Date: 20100710
  Serious: Yes (Hospitalization)
  Sender: FDA-Public Use
  Company Number: 230992J10USA

PATIENT
  Age: 32 Year
  Sex: Female
  Weight: 115 kg

DRUGS (2)
  1. REBIF [Suspect]
     Indication: MULTIPLE SCLEROSIS
     Dosage: 44 MCG, 3 IN 1 WEEKS, SUBCUTANEOUS
     Route: 058
     Dates: start: 20080101, end: 20080101
  2. REBIF [Suspect]
     Indication: MULTIPLE SCLEROSIS
     Dosage: 44 MCG, 3 IN 1 WEEKS, SUBCUTANEOUS
     Route: 058
     Dates: start: 20090813, end: 20091101

REACTIONS (4)
  - DRUG LEVEL BELOW THERAPEUTIC [None]
  - INFUSION SITE INFECTION [None]
  - INTRAPERICARDIAL THROMBOSIS [None]
  - STAPHYLOCOCCAL INFECTION [None]
